FAERS Safety Report 9940127 (Version 1)
Quarter: 2014Q1

REPORT INFORMATION
  Report Type: Report from Study
  Country: US (occurrence: US)
  Receive Date: 20140303
  Receipt Date: 20140303
  Transmission Date: 20141002
  Serious: No
  Sender: FDA-Public Use
  Company Number: US-ABBVIE-13P-163-1032626-00

PATIENT
  Age: 40 Year
  Sex: Female

DRUGS (4)
  1. HUMIRA [Suspect]
     Indication: CROHN^S DISEASE
     Dates: start: 20120703
  2. METHOTREXATE [Concomitant]
     Indication: PRODUCT USED FOR UNKNOWN INDICATION
     Dosage: 4 TABS PER WEEK
  3. FOLIC ACID [Concomitant]
     Indication: CROHN^S DISEASE
     Dosage: 7 TABS PER WEEK
  4. MORPHINE [Concomitant]
     Indication: PAIN
     Dosage: 60 MG TWICE DAILY AS REQUIRED

REACTIONS (1)
  - Influenza [Not Recovered/Not Resolved]
